FAERS Safety Report 10037329 (Version 3)
Quarter: 2014Q2

REPORT INFORMATION
  Report Type: Spontaneous
  Country: IT (occurrence: IT)
  Receive Date: 20140326
  Receipt Date: 20140527
  Transmission Date: 20141212
  Serious: Yes (Other)
  Sender: FDA-Public Use
  Company Number: IT-ELI_LILLY_AND_COMPANY-IT201403005443

PATIENT
  Age: 83 Year
  Sex: Female
  Weight: 65 kg

DRUGS (11)
  1. HUMALOG LISPRO [Suspect]
     Indication: TYPE 2 DIABETES MELLITUS
     Dosage: 14 IU, QD
     Route: 058
     Dates: start: 20140121, end: 20140121
  2. HUMALOG LISPRO [Suspect]
     Dosage: 19 IU, QD
     Route: 058
     Dates: start: 20140122, end: 20140122
  3. HUMALOG LISPRO [Suspect]
     Dosage: 23 IU, QD
     Route: 058
     Dates: start: 20140123, end: 20140123
  4. HUMALOG LISPRO [Suspect]
     Dosage: 12 IU, QD
     Route: 058
     Dates: start: 20140124, end: 20140124
  5. RAMIPRIL [Concomitant]
     Dosage: 5 MG, UNKNOWN
     Route: 048
     Dates: start: 20140120, end: 20140205
  6. CARDIO ASPIRIN [Concomitant]
     Dosage: 100 MG, UNKNOWN
     Route: 048
     Dates: start: 20140120, end: 20140205
  7. AMLODIPINE [Concomitant]
     Dosage: 5 MG, UNKNOWN
     Route: 048
     Dates: start: 20140121, end: 20140121
  8. AMLODIPINE [Concomitant]
     Dosage: 10 MG, UNKNOWN
     Route: 048
     Dates: start: 20140122, end: 20140204
  9. CLEXANE [Concomitant]
     Dosage: 4000 IU, UNKNOWN
     Route: 058
     Dates: start: 20140120, end: 20140122
  10. LANTUS [Concomitant]
     Dosage: 190 IU, UNKNOWN
     Route: 058
     Dates: start: 20140121, end: 20140204
  11. COVERSYL [Concomitant]
     Dosage: 5 MG, UNKNOWN

REACTIONS (5)
  - Dermatitis exfoliative [Recovered/Resolved]
  - Blister [Recovered/Resolved]
  - Erythema [Recovered/Resolved]
  - Rash [Recovered/Resolved]
  - Pruritus [Recovered/Resolved]
